FAERS Safety Report 14370832 (Version 2)
Quarter: 2018Q1

REPORT INFORMATION
  Report Type: Spontaneous
  Country: US (occurrence: US)
  Receive Date: 20180110
  Receipt Date: 20180221
  Transmission Date: 20180509
  Serious: No
  Sender: FDA-Public Use
  Company Number: US-PFIZER INC-2018007315

PATIENT
  Age: 71 Year
  Sex: Male
  Weight: 65 kg

DRUGS (7)
  1. LYRICA [Suspect]
     Active Substance: PREGABALIN
     Indication: MUSCULOSKELETAL PAIN
  2. LYRICA [Suspect]
     Active Substance: PREGABALIN
     Indication: SPINAL OSTEOARTHRITIS
  3. LYRICA [Suspect]
     Active Substance: PREGABALIN
     Indication: BACK PAIN
     Dosage: 50MG, ONE CAPSULE 3 TIMES A DAY
     Route: 048
     Dates: start: 201702
  4. LYRICA [Suspect]
     Active Substance: PREGABALIN
     Indication: CONTUSION
  5. LYRICA [Suspect]
     Active Substance: PREGABALIN
     Indication: BURSITIS
  6. LYRICA [Suspect]
     Active Substance: PREGABALIN
     Indication: LUMBAR RADICULOPATHY
  7. TRAMADOL. [Concomitant]
     Active Substance: TRAMADOL
     Indication: PAIN
     Dosage: 50MG TABLET 4 TIMES A DAY
     Route: 048
     Dates: start: 2017

REACTIONS (3)
  - Back pain [Not Recovered/Not Resolved]
  - Drug dose omission [Unknown]
  - Condition aggravated [Not Recovered/Not Resolved]

NARRATIVE: CASE EVENT DATE: 201710
